FAERS Safety Report 7798771-X (Version None)
Quarter: 2011Q4

REPORT INFORMATION
  Report Type: 
  Country: None (occurrence: None)
  Receive Date: 20111006
  Receipt Date: 20110926
  Transmission Date: 20120403
  Serious: Yes (Hospitalization)
  Sender: FDA-Public Use
  Company Number: PHHO2011GB16541

PATIENT
  Sex: Male
  Weight: 67.2 kg

DRUGS (14)
  1. ENALAPRIL MALEATE [Suspect]
     Dosage: CODE NOT BROKEN
     Route: 048
     Dates: start: 20110921, end: 20110923
  2. ENALAPRIL MALEATE [Suspect]
     Indication: CARDIAC FAILURE CHRONIC
     Dosage: CODE NOT BROKEN
     Route: 048
     Dates: start: 20110706, end: 20110920
  3. VALSARTAN [Suspect]
     Dosage: CODE NOT BROKEN
     Route: 048
     Dates: start: 20110921, end: 20110923
  4. BLINDED NO TREATMENT RECEIVED [Suspect]
     Dosage: CODE NOT BROKEN
     Route: 048
     Dates: start: 20110921, end: 20110923
  5. ENALAPRIL MALEATE [Suspect]
     Dosage: CODE NOT BROKEN
     Route: 048
     Dates: start: 20110926
  6. BLINDED NO TREATMENT RECEIVED [Suspect]
     Indication: CARDIAC FAILURE CHRONIC
     Dosage: CODE NOT BROKEN
     Route: 048
     Dates: start: 20110706, end: 20110920
  7. VALSARTAN [Suspect]
     Indication: CARDIAC FAILURE CHRONIC
     Dosage: CODE NOT BROKEN
     Route: 048
     Dates: start: 20110706, end: 20110920
  8. BLINDED NO TREATMENT RECEIVED [Suspect]
     Dosage: CODE NOT BROKEN
     Route: 048
     Dates: start: 20110926
  9. BUMETANIDE [Suspect]
     Indication: CARDIAC FAILURE CHRONIC
     Dosage: 1 MG, BID
     Route: 048
     Dates: start: 20110813, end: 20110923
  10. BUMETANIDE [Suspect]
     Dosage: 1 MG, BID
  11. VALSARTAN [Suspect]
     Dosage: CODE NOT BROKEN
     Route: 048
     Dates: start: 20110926
  12. SPIRONOLACTONE [Suspect]
     Indication: CARDIAC FAILURE CHRONIC
     Dosage: 50 MG, QD
     Route: 048
     Dates: start: 20090101, end: 20110923
  13. BUMETANIDE [Suspect]
     Dosage: 2 MG, QD
  14. FUROSEMIDE [Suspect]
     Indication: CARDIAC FAILURE CHRONIC

REACTIONS (2)
  - RENAL IMPAIRMENT [None]
  - CONCOMITANT DISEASE PROGRESSION [None]
